FAERS Safety Report 12450233 (Version 1)
Quarter: 2016Q2

REPORT INFORMATION
  Report Type: Spontaneous
  Country: US (occurrence: None)
  Receive Date: 20160608
  Receipt Date: 20160608
  Transmission Date: 20160815
  Serious: No
  Sender: FDA-Public Use
  Company Number: None

PATIENT
  Age: 46 Year
  Sex: Female
  Weight: 81.65 kg

DRUGS (2)
  1. AMPHETAMINE AND DEXTROAMPHETAMIN, 30MG TEVA, ACTAVIS [Suspect]
     Active Substance: AMPHETAMINE ASPARTATE\AMPHETAMINE SULFATE\DEXTROAMPHETAMINE SACCHARATE\DEXTROAMPHETAMINE SULFATE
     Indication: ATTENTION DEFICIT/HYPERACTIVITY DISORDER
     Dosage: IN THE MORNING
     Route: 048
  2. ESTRODIOL [Concomitant]

REACTIONS (6)
  - Insomnia [None]
  - Headache [None]
  - Product substitution issue [None]
  - Palpitations [None]
  - Joint stiffness [None]
  - Drug ineffective [None]

NARRATIVE: CASE EVENT DATE: 20160101
